FAERS Safety Report 4634710-8 (Version None)
Quarter: 2005Q2

REPORT INFORMATION
  Report Type: 
  Country: None (occurrence: None)
  Receive Date: 20050412
  Receipt Date: 20050330
  Transmission Date: 20051028
  Serious: Yes (Death, Other)
  Sender: FDA-Public Use
  Company Number: 2005053400

PATIENT
  Sex: Male

DRUGS (2)
  1. PREDNISONE [Suspect]
     Indication: ROSACEA
     Dosage: 35 MG, ORAL
     Route: 048
  2. ERYTHROMYCIN [Suspect]
     Indication: ROSACEA
     Dosage: 1500 MG, ORAL
     Route: 048

REACTIONS (10)
  - CAESAREAN SECTION [None]
  - DRUG EXPOSURE DURING PREGNANCY [None]
  - FOETAL ARRHYTHMIA [None]
  - GESTATIONAL DIABETES [None]
  - INDUCED LABOUR [None]
  - INTRA-UTERINE DEATH [None]
  - OLIGOHYDRAMNIOS [None]
  - PREGNANCY [None]
  - STILLBIRTH [None]
  - THERAPY NON-RESPONDER [None]
